FAERS Safety Report 23026320 (Version 5)
Quarter: 2023Q4

REPORT INFORMATION
  Report Type: Spontaneous
  Country: US (occurrence: US)
  Receive Date: 20231004
  Receipt Date: 20231205
  Transmission Date: 20240110
  Serious: Yes (Other)
  Sender: FDA-Public Use
  Company Number: US-UNITED THERAPEUTICS-UNT-2023-027414

PATIENT
  Sex: Male

DRUGS (11)
  1. REMODULIN [Suspect]
     Active Substance: TREPROSTINIL
     Indication: Pulmonary arterial hypertension
     Dosage: 0.014 ?G/KG, CONTINUING
     Route: 041
     Dates: start: 2023
  2. REMODULIN [Suspect]
     Active Substance: TREPROSTINIL
     Dosage: 0.012 ?G/KG (DOSE DECREASED), CONTINUING
     Route: 041
     Dates: start: 20231013
  3. REMODULIN [Suspect]
     Active Substance: TREPROSTINIL
     Dosage: UNK, CONTINUING
     Route: 041
     Dates: start: 202308
  4. TYVASO DPI [Suspect]
     Active Substance: TREPROSTINIL
     Indication: Pulmonary arterial hypertension
     Dosage: 48 ?G, QID
  5. TYVASO DPI [Suspect]
     Active Substance: TREPROSTINIL
     Dosage: UNK
     Dates: start: 202211, end: 2023
  6. TYVASO DPI [Suspect]
     Active Substance: TREPROSTINIL
     Indication: Pulmonary arterial hypertension
     Dosage: UNK
  7. OPSUMIT [Concomitant]
     Active Substance: MACITENTAN
     Indication: Product used for unknown indication
     Dosage: UNK
     Route: 065
     Dates: end: 20231020
  8. ADEMPAS [Concomitant]
     Active Substance: RIOCIGUAT
     Indication: Product used for unknown indication
     Dosage: UNK
     Route: 065
     Dates: end: 202310
  9. SPIRONOLACTONE [Concomitant]
     Active Substance: SPIRONOLACTONE
     Indication: Product used for unknown indication
     Dosage: UNK
     Route: 065
  10. POTASSIUM [Concomitant]
     Active Substance: POTASSIUM
     Indication: Product used for unknown indication
     Dosage: UNK
     Route: 065
  11. SILDENAFIL [Concomitant]
     Active Substance: SILDENAFIL
     Indication: Product used for unknown indication
     Dosage: UNK
     Route: 065
     Dates: start: 20231023

REACTIONS (17)
  - Pulmonary veno-occlusive disease [Unknown]
  - Periorbital swelling [Unknown]
  - Ocular icterus [Unknown]
  - Hepatic steatosis [Unknown]
  - Feeling hot [Unknown]
  - Night sweats [Unknown]
  - Tremor [Unknown]
  - Palpitations [Unknown]
  - Anxiety [Unknown]
  - Diarrhoea [Not Recovered/Not Resolved]
  - Oxygen saturation decreased [Recovering/Resolving]
  - Hyperventilation [Unknown]
  - Pain [Recovering/Resolving]
  - Hyperphagia [Unknown]
  - Polydipsia [Unknown]
  - Pollakiuria [Unknown]
  - Nasal congestion [Unknown]

NARRATIVE: CASE EVENT DATE: 20230101
